FAERS Safety Report 16156871 (Version 1)
Quarter: 2019Q2

REPORT INFORMATION
  Report Type: Spontaneous
  Country: US (occurrence: US)
  Receive Date: 20190228
  Receipt Date: 20190228
  Transmission Date: 20190711
  Serious: Yes (Life-Threatening, Hospitalization)
  Sender: FDA-Public Use
  Company Number: None

PATIENT
  Age: 62 Year
  Sex: Male
  Weight: 93 kg

DRUGS (1)
  1. IOPROMIDE. [Suspect]
     Active Substance: IOPROMIDE
     Indication: SURGERY
     Route: 042
     Dates: start: 20190118, end: 20190118

REACTIONS (2)
  - Status asthmaticus [None]
  - Contrast media reaction [None]

NARRATIVE: CASE EVENT DATE: 20190118
